FAERS Safety Report 11778552 (Version 1)
Quarter: 2015Q4

REPORT INFORMATION
  Report Type: Other
  Country: US (occurrence: US)
  Receive Date: 20151125
  Receipt Date: 20151125
  Transmission Date: 20160304
  Serious: Yes (Death)
  Sender: FDA-Public Use
  Company Number: US-WOCKHARDT USA, LLC-1044649

PATIENT
  Age: 21 Year
  Sex: Female

DRUGS (8)
  1. FLUOXETINE [Concomitant]
     Active Substance: FLUOXETINE HYDROCHLORIDE
  2. MEPROBAMATE. [Concomitant]
     Active Substance: MEPROBAMATE
  3. CARISOPRODOL. [Concomitant]
     Active Substance: CARISOPRODOL
  4. DOXYLAMINE [Concomitant]
     Active Substance: DOXYLAMINE
  5. SUMATRIPTAN SUCCINATE. [Suspect]
     Active Substance: SUMATRIPTAN SUCCINATE
  6. HYDROXYZINE [Concomitant]
     Active Substance: HYDROXYZINE\HYDROXYZINE HYDROCHLORIDE
  7. ORPHENADRINE [Concomitant]
     Active Substance: ORPHENADRINE
  8. DEXTROMETHORPHAN [Concomitant]
     Active Substance: DEXTROMETHORPHAN

REACTIONS (2)
  - Accidental overdose [Fatal]
  - Drug interaction [Fatal]
